FAERS Safety Report 8330607-0 (Version None)
Quarter: 2012Q2

REPORT INFORMATION
  Report Type: 
  Country: None (occurrence: None)
  Receive Date: 20120502
  Receipt Date: 20120405
  Transmission Date: 20120825
  Serious: No
  Sender: FDA-Public Use
  Company Number: US-AMGEN-USASP2012021830

PATIENT
  Age: 57 Year
  Sex: Female

DRUGS (2)
  1. ENBREL [Suspect]
     Indication: PSORIATIC ARTHROPATHY
     Dosage: 50 MG, 2 TIMES/WK
     Dates: start: 20070220
  2. ENBREL [Suspect]
     Indication: PSORIASIS

REACTIONS (9)
  - PSORIASIS [None]
  - SECRETION DISCHARGE [None]
  - WOUND HAEMORRHAGE [None]
  - INJECTION SITE REACTION [None]
  - INJECTION SITE PAIN [None]
  - INJECTION SITE HAEMATOMA [None]
  - FURUNCLE [None]
  - PSORIATIC ARTHROPATHY [None]
  - INJECTION SITE ERYTHEMA [None]
